FAERS Safety Report 4529364-5 (Version None)
Quarter: 2004Q4

REPORT INFORMATION
  Report Type: 
  Country: None (occurrence: None)
  Receive Date: 20041214
  Receipt Date: 20041129
  Transmission Date: 20050328
  Serious: Yes (Hospitalization)
  Sender: FDA-Public Use
  Company Number: 2004CG02397

PATIENT
  Age: 82 Year
  Sex: Female
  Weight: 50 kg

DRUGS (9)
  1. ATACAND [Suspect]
     Indication: ESSENTIAL HYPERTENSION
     Dosage: 16 MG DAILY PO
     Route: 048
     Dates: end: 20041001
  2. ATACAND [Suspect]
     Indication: ESSENTIAL HYPERTENSION
     Dates: start: 20041001
  3. FLODIL - SLOW RELEASE [Suspect]
     Indication: ESSENTIAL HYPERTENSION
     Dosage: 5 MG DAILY PO
     Route: 048
  4. KREDEX [Suspect]
     Indication: ESSENTIAL HYPERTENSION
     Dosage: 12.5 MG DAILY PO
     Route: 048
     Dates: end: 20041001
  5. KREDEX [Suspect]
     Indication: ESSENTIAL HYPERTENSION
     Dates: start: 20041001
  6. LASILIX [Suspect]
     Indication: ESSENTIAL HYPERTENSION
     Dosage: 40 MG DAILY PO
     Route: 048
     Dates: end: 20041001
  7. LASILIX [Suspect]
     Indication: ESSENTIAL HYPERTENSION
     Dates: start: 20041001
  8. CORVASAL [Concomitant]
  9. NITRODERM [Concomitant]

REACTIONS (6)
  - ASTHENIA [None]
  - DIZZINESS [None]
  - LOSS OF CONSCIOUSNESS [None]
  - MALAISE [None]
  - ORTHOSTATIC HYPOTENSION [None]
  - VISION BLURRED [None]
